FAERS Safety Report 23082670 (Version 1)
Quarter: 2023Q4

REPORT INFORMATION
  Report Type: Spontaneous
  Country: US (occurrence: US)
  Receive Date: 20231019
  Receipt Date: 20231019
  Transmission Date: 20240110
  Serious: No
  Sender: FDA-Public Use
  Company Number: US-PADAGIS-2023PAD01476

PATIENT

DRUGS (2)
  1. ESTRADIOL VAGINAL [Suspect]
     Active Substance: ESTRADIOL
     Indication: Vaginal disorder
     Dosage: VERY SMALL AMOUNT ONCE A WEEK (OR) HALF AN APPLICATOR ONCE A WEEK
     Route: 065
     Dates: start: 2022
  2. ESTROGENS, CONJUGATED [Concomitant]
     Active Substance: ESTROGENS, CONJUGATED
     Indication: Vaginal disorder
     Dosage: USED FOR A COUPLE YEARS
     Route: 065

REACTIONS (3)
  - Vaginal odour [Not Recovered/Not Resolved]
  - Inappropriate schedule of product administration [Unknown]
  - Product use in unapproved indication [Unknown]

NARRATIVE: CASE EVENT DATE: 20220101
